FAERS Safety Report 9695001 (Version 1)
Quarter: 2013Q4

REPORT INFORMATION
  Report Type: Spontaneous
  Country: NL (occurrence: NL)
  Receive Date: 20131119
  Receipt Date: 20131119
  Transmission Date: 20140711
  Serious: Yes (Hospitalization)
  Sender: FDA-Public Use
  Company Number: NL-JNJFOC-20131107096

PATIENT
  Age: 46 Year
  Sex: Female
  Weight: 78 kg

DRUGS (2)
  1. TRINOVUM [Suspect]
     Indication: CONTRACEPTION
     Dosage: 1 KEER PER DAG 1 STUK(S)
     Route: 048
     Dates: start: 1987, end: 20131108
  2. SUMATRIPTAN SUCCINATE [Concomitant]
     Indication: PRODUCT USED FOR UNKNOWN INDICATION
     Dosage: DISPERTABLET, ZO NO DIG
     Route: 048

REACTIONS (1)
  - Intracranial venous sinus thrombosis [Unknown]
